FAERS Safety Report 13059580 (Version 1)
Quarter: 2016Q4

REPORT INFORMATION
  Report Type: Spontaneous
  Country: ES (occurrence: ES)
  Receive Date: 20161223
  Receipt Date: 20161223
  Transmission Date: 20170207
  Serious: Yes (Hospitalization, Other)
  Sender: FDA-Public Use
  Company Number: ES-GLAXOSMITHKLINE-ES2016GSK189344

PATIENT
  Age: 80 Year
  Sex: Male

DRUGS (17)
  1. BISOPROLOL [Concomitant]
     Active Substance: BISOPROLOL
  2. IRON [Concomitant]
     Active Substance: IRON
  3. AMLODIPINE [Concomitant]
     Active Substance: AMLODIPINE BESYLATE
  4. MOXONIDINE [Concomitant]
     Active Substance: MOXONIDINE
  5. LOSARTAN. [Concomitant]
     Active Substance: LOSARTAN
  6. DOXAZOSIN [Concomitant]
     Active Substance: DOXAZOSIN\DOXAZOSIN MESYLATE
  7. OMEPRAZOLE. [Concomitant]
     Active Substance: OMEPRAZOLE
  8. REPAGLINIDE. [Concomitant]
     Active Substance: REPAGLINIDE
     Indication: TYPE 2 DIABETES MELLITUS
  9. ATORVASTATIN [Concomitant]
     Active Substance: ATORVASTATIN
  10. CALCIUM [Concomitant]
     Active Substance: CALCIUM
  11. FUROSEMIDE. [Concomitant]
     Active Substance: FUROSEMIDE
     Indication: HYPERTENSION
  12. ALLOPURINOL. [Concomitant]
     Active Substance: ALLOPURINOL
  13. INSULIN GLARGINE [Concomitant]
     Active Substance: INSULIN GLARGINE
  14. PARACETAMOL [Concomitant]
     Active Substance: ACETAMINOPHEN
  15. ASPIRIN. [Concomitant]
     Active Substance: ASPIRIN
  16. CEFUROXIME. [Suspect]
     Active Substance: CEFUROXIME
     Indication: CYSTITIS
  17. LORMETAZEPAM [Concomitant]
     Active Substance: LORMETAZEPAM

REACTIONS (1)
  - Hypersensitivity vasculitis [Unknown]
